FAERS Safety Report 24376733 (Version 1)
Quarter: 2024Q3

REPORT INFORMATION
  Report Type: Spontaneous
  Country: PR (occurrence: PR)
  Receive Date: 20240930
  Receipt Date: 20240930
  Transmission Date: 20241017
  Serious: No
  Sender: SANOFI AVENTIS
  Company Number: PR-SA-2024SA276912

PATIENT
  Sex: Female

DRUGS (1)
  1. DUPIXENT [Suspect]
     Active Substance: DUPILUMAB
     Indication: Eosinophilic oesophagitis
     Dosage: 300 MG, QOW
     Route: 058
     Dates: start: 20230728

REACTIONS (2)
  - Ovarian disorder [Not Recovered/Not Resolved]
  - Menstrual disorder [Not Recovered/Not Resolved]
